FAERS Safety Report 22367135 (Version 2)
Quarter: 2023Q2

REPORT INFORMATION
  Report Type: Spontaneous
  Country: AT (occurrence: AT)
  Receive Date: 20230525
  Receipt Date: 20230602
  Transmission Date: 20230721
  Serious: Yes (Hospitalization, Other)
  Sender: FDA-Public Use
  Company Number: AT-KRKA-AT2023K06322LIT

PATIENT
  Age: 35 Year
  Sex: Female
  Weight: 80 kg

DRUGS (3)
  1. SERTRALINE [Interacting]
     Active Substance: SERTRALINE HYDROCHLORIDE
     Indication: Depression
     Dosage: 150 MILLIGRAM, QD (PER DAY)
     Route: 065
  2. DIMENHYDRINATE [Interacting]
     Active Substance: DIMENHYDRINATE
     Indication: Vertigo
     Dosage: 100 MILLIGRAM, QD (50 MG, 2X PER DAY)
     Route: 042
  3. DIMENHYDRINATE [Interacting]
     Active Substance: DIMENHYDRINATE
     Dosage: 50 MILLIGRAM (SECOND INFUSION)
     Route: 065

REACTIONS (5)
  - Urinary retention [Recovered/Resolved]
  - Drug interaction [Recovered/Resolved]
  - Hypoparathyroidism [Unknown]
  - Hypoprolactinaemia [Unknown]
  - Hyperlipidaemia [Unknown]
